FAERS Safety Report 14148727 (Version 3)
Quarter: 2018Q2

REPORT INFORMATION
  Report Type: Report from Study
  Country: None (occurrence: CA)
  Receive Date: 20171101
  Receipt Date: 20180419
  Transmission Date: 20180711
  Serious: Yes (Hospitalization, Other)
  Sender: FDA-Public Use
  Company Number: CA-ABBVIE-17K-028-2131614-00

PATIENT
  Age: 58 Year
  Sex: Female
  Weight: 63.56 kg

DRUGS (1)
  1. HUMIRA [Suspect]
     Active Substance: ADALIMUMAB
     Indication: CROHN^S DISEASE
     Route: 058
     Dates: start: 20170714

REACTIONS (9)
  - Biliary dilatation [Unknown]
  - Cholecystitis [Unknown]
  - Cholangitis sclerosing [Unknown]
  - Incision site abscess [Not Recovered/Not Resolved]
  - Diarrhoea [Recovered/Resolved]
  - Post procedural complication [Unknown]
  - Pancreatitis [Unknown]
  - Dehydration [Not Recovered/Not Resolved]
  - Postoperative wound infection [Not Recovered/Not Resolved]

NARRATIVE: CASE EVENT DATE: 2017
